FAERS Safety Report 6187725-5 (Version None)
Quarter: 2009Q2

REPORT INFORMATION
  Report Type: 
  Country: None (occurrence: None)
  Receive Date: 20090513
  Receipt Date: 20090420
  Transmission Date: 20091009
  Serious: Yes (Other)
  Sender: FDA-Public Use
  Company Number: US-PFIZER INC-2007027781

PATIENT
  Sex: Female
  Weight: 90.249 kg

DRUGS (7)
  1. CHANTIX [Suspect]
     Indication: SMOKING CESSATION THERAPY
     Dosage: UNK
     Dates: start: 20070114
  2. CHANTIX [Suspect]
     Dates: start: 20090413
  3. CHANTIX [Suspect]
     Dosage: 0.5 MG, 1X/DAY
     Route: 048
     Dates: start: 20090413
  4. ZOLOFT [Concomitant]
  5. WELLBUTRIN [Concomitant]
  6. PROTONIX [Concomitant]
  7. FISH OIL [Concomitant]

REACTIONS (4)
  - BACK INJURY [None]
  - DRUG INEFFECTIVE [None]
  - NAUSEA [None]
  - ROAD TRAFFIC ACCIDENT [None]
